FAERS Safety Report 18168978 (Version 1)
Quarter: 2020Q3

REPORT INFORMATION
  Report Type: Spontaneous
  Country: DE (occurrence: DE)
  Receive Date: 20200818
  Receipt Date: 20200818
  Transmission Date: 20201103
  Serious: Yes (Other)
  Sender: FDA-Public Use
  Company Number: DE-NEUROCRINE BIOSCIENCES INC.-2020NBI03065

PATIENT
  Age: 65 Year
  Sex: Female

DRUGS (1)
  1. ONGENTYS [Suspect]
     Active Substance: OPICAPONE
     Indication: PRODUCT USED FOR UNKNOWN INDICATION
     Dosage: UNKNOWN
     Route: 065
     Dates: start: 202007

REACTIONS (3)
  - Musculoskeletal stiffness [Unknown]
  - Immobile [Unknown]
  - Erythema [Unknown]

NARRATIVE: CASE EVENT DATE: 2020
